FAERS Safety Report 10119043 (Version 2)
Quarter: 2014Q2

REPORT INFORMATION
  Report Type: Report from Study
  Country: US (occurrence: US)
  Receive Date: 20140425
  Receipt Date: 20140610
  Transmission Date: 20141212
  Serious: Yes (Death, Hospitalization)
  Sender: FDA-Public Use
  Company Number: US-ACTELION-A-US2014-97453

PATIENT
  Age: 61 Year
  Sex: Female

DRUGS (7)
  1. MACITENTAN [Suspect]
     Indication: PULMONARY ARTERIAL HYPERTENSION
     Dosage: 10 MG, QD
     Route: 048
     Dates: start: 20131103, end: 20140317
  2. VELETRI [Concomitant]
     Indication: PULMONARY ARTERIAL HYPERTENSION
     Dosage: UNK
     Route: 042
     Dates: start: 20140313
  3. LEVOTHYROXINE [Concomitant]
  4. ATENOLOL [Concomitant]
  5. HYDROCHLOROTHIAZIDE [Concomitant]
  6. NEXIUM [Concomitant]
  7. POTASSIUM [Concomitant]

REACTIONS (5)
  - Acute myocardial infarction [Fatal]
  - Cardiac arrest [Fatal]
  - CREST syndrome [Unknown]
  - Ischaemic hepatitis [Unknown]
  - Liver function test abnormal [Unknown]
